FAERS Safety Report 4299238-6 (Version None)
Quarter: 2004Q1

REPORT INFORMATION
  Report Type: 
  Country: None (occurrence: None)
  Receive Date: 20040217
  Receipt Date: 20040217
  Transmission Date: 20041129
  Serious: No
  Sender: FDA-Public Use
  Company Number: None

PATIENT
  Age: 60 Year
  Sex: Male

DRUGS (9)
  1. METFORMIN HCL [Suspect]
     Indication: DIABETES MELLITUS
     Dosage: 850 MG TID
     Dates: start: 20031201, end: 20040202
  2. AVANDIA [Concomitant]
  3. AMARYL [Concomitant]
  4. PRECOSE [Concomitant]
  5. TOPROL-XL [Concomitant]
  6. LIPITOR [Concomitant]
  7. SYNTHROID [Concomitant]
  8. RANITIDINE [Concomitant]
  9. CLARINEX [Concomitant]

REACTIONS (5)
  - BLOOD GLUCOSE INCREASED [None]
  - FATIGUE [None]
  - HUNGER [None]
  - PHARMACEUTICAL PRODUCT COMPLAINT [None]
  - THIRST [None]
